FAERS Safety Report 4593046-4 (Version None)
Quarter: 2005Q1

REPORT INFORMATION
  Report Type: 
  Country: None (occurrence: None)
  Receive Date: 20050301
  Receipt Date: 20050218
  Transmission Date: 20050727
  Serious: Yes (Other)
  Sender: FDA-Public Use
  Company Number: US-JNJFOC-20050205559

PATIENT
  Sex: Female
  Weight: 58.06 kg

DRUGS (6)
  1. REMICADE [Suspect]
     Route: 042
  2. REMICADE [Suspect]
     Indication: RHEUMATOID ARTHRITIS
     Route: 042
  3. METHOTREXATE [Concomitant]
     Indication: RHEUMATOID ARTHRITIS
     Dosage: WEEKLY
  4. PREDNISONE [Concomitant]
     Indication: RHEUMATOID ARTHRITIS
     Dosage: DAILY
  5. VITAMINS [Concomitant]
  6. CALCIUM GLUCONATE [Concomitant]

REACTIONS (8)
  - ARTHRALGIA [None]
  - ASTHENIA [None]
  - CATARACT [None]
  - CONJUNCTIVAL SCAR [None]
  - CONTUSION [None]
  - DRUG INEFFECTIVE [None]
  - EYE DISORDER [None]
  - LENS DISLOCATION [None]
